FAERS Safety Report 8119470-0 (Version None)
Quarter: 2012Q1

REPORT INFORMATION
  Report Type: 
  Country: None (occurrence: None)
  Receive Date: 20120207
  Receipt Date: 20120125
  Transmission Date: 20120608
  Serious: Yes (Other)
  Sender: FDA-Public Use
  Company Number: PHHY2012BR006925

PATIENT
  Sex: Male

DRUGS (2)
  1. FORMOTEROL FUMARATE [Suspect]
     Indication: EMPHYSEMA
     Dosage: 2 DF, PER DAY
  2. FORMOTEROL FUMARATE [Suspect]
     Dosage: 3 DF, PER DAY

REACTIONS (2)
  - CARDIAC DISORDER [None]
  - DYSPNOEA [None]
